FAERS Safety Report 10670711 (Version 4)
Quarter: 2016Q1

REPORT INFORMATION
  Report Type: Spontaneous
  Country: US (occurrence: US)
  Receive Date: 20141223
  Receipt Date: 20160217
  Transmission Date: 20160525
  Serious: Yes (Hospitalization)
  Sender: FDA-Public Use
  Company Number: US-PFIZER INC-2014347565

PATIENT
  Age: 48 Year
  Sex: Female

DRUGS (12)
  1. NICODERM CQ [Concomitant]
     Active Substance: NICOTINE
     Dosage: UNK, 2X/DAY (14 MG/24HR PATCH: 1 PATCH/14 MG/24HR PATCH )
     Route: 062
  2. NICODERM CQ [Concomitant]
     Active Substance: NICOTINE
     Dosage: UNK, 2X/DAY (21 MG/24HR PATCH 24 HR: 1 PATCH/EVERY 24 HR)
     Route: 062
  3. NICODERM CQ [Concomitant]
     Active Substance: NICOTINE
     Dosage: UNK, 2X/DAY (7 MG/24HR PATCH 24 HR: 1 PATCH/EVERY 24 HRS)
     Route: 062
  4. TYLENOL [Concomitant]
     Active Substance: ACETAMINOPHEN
     Indication: PAIN
     Dosage: 1 DF, AS NEEDED (ACETAMINOPHEN: 300MG; CODEINE: 30MG/EVERY 4 HOURS AS NEEDED)
     Route: 048
  5. FLEXERIL [Concomitant]
     Active Substance: CYCLOBENZAPRINE HYDROCHLORIDE
     Indication: MUSCLE SPASMS
     Dosage: 10 MG, AS NEEDED (THREE TIMES DAILY AS NEEDED)
     Route: 048
  6. XANAX [Concomitant]
     Active Substance: ALPRAZOLAM
     Dosage: 1 MG, AS NEEDED (3 TIMES DAILY AS NEEDED)
     Route: 048
  7. ZYRTEC [Concomitant]
     Active Substance: CETIRIZINE HYDROCHLORIDE
     Dosage: 10 MG, DAILY
     Route: 048
  8. PRILOSEC [Concomitant]
     Active Substance: OMEPRAZOLE MAGNESIUM
     Dosage: 40 MG, DAILY
     Route: 048
  9. NORCO [Concomitant]
     Active Substance: ACETAMINOPHEN\HYDROCODONE BITARTRATE
     Indication: PAIN
     Dosage: 1 DF, AS NEEDED (HYDROCODONE: 7.5MG; ACETAMINOPHEN: 325MG/EVERY 6 HOURS AS NEEDED)
     Route: 048
  10. LYRICA [Suspect]
     Active Substance: PREGABALIN
     Dosage: 150 MG, 3X/DAY
     Route: 048
  11. NEURONTIN [Concomitant]
     Active Substance: GABAPENTIN
     Dosage: 400 MG, 3X/DAY
     Route: 048
  12. CHANTIX [Concomitant]
     Active Substance: VARENICLINE TARTRATE
     Dosage: 1 MG, 2X/DAY
     Route: 048

REACTIONS (1)
  - Chronic obstructive pulmonary disease [Recovered/Resolved]
